FAERS Safety Report 8829737 (Version 1)
Quarter: 2012Q4

REPORT INFORMATION
  Report Type: Spontaneous
  Country: US (occurrence: None)
  Receive Date: 20121005
  Receipt Date: 20121005
  Transmission Date: 20130627
  Serious: Yes (Other)
  Sender: FDA-Public Use
  Company Number: None

PATIENT
  Age: 49 Year
  Sex: Male
  Weight: 97.52 kg

DRUGS (1)
  1. FORTESTA [Suspect]
     Indication: TESTOSTERONE LOW
     Route: 062
     Dates: start: 20120728, end: 20120818

REACTIONS (2)
  - Application site inflammation [None]
  - Application site exfoliation [None]
